FAERS Safety Report 6612122-5 (Version None)
Quarter: 2010Q1

REPORT INFORMATION
  Report Type: 
  Country: None (occurrence: None)
  Receive Date: 20100303
  Receipt Date: 20100219
  Transmission Date: 20100710
  Serious: Yes (Death)
  Sender: FDA-Public Use
  Company Number: JP-SP-2007-03610

PATIENT
  Sex: Male

DRUGS (2)
  1. IMMUCYST [Suspect]
     Indication: BLADDER CANCER
     Route: 043
     Dates: start: 20060622, end: 20060720
  2. TIAPRIDE HYDROCHLORIDE [Concomitant]
     Dates: start: 20060622, end: 20060720

REACTIONS (9)
  - BLOOD BILIRUBIN INCREASED [None]
  - BLOOD UREA INCREASED [None]
  - CONDITION AGGRAVATED [None]
  - DEMENTIA [None]
  - HAEMOGLOBIN DECREASED [None]
  - PNEUMONIA STAPHYLOCOCCAL [None]
  - PROTEIN URINE PRESENT [None]
  - RED BLOOD CELLS URINE POSITIVE [None]
  - SUPRAVENTRICULAR TACHYCARDIA [None]
